FAERS Safety Report 6607175-4 (Version None)
Quarter: 2010Q1

REPORT INFORMATION
  Report Type: 
  Country: None (occurrence: None)
  Receive Date: 20100212
  Receipt Date: 20091111
  Transmission Date: 20100710
  Serious: No
  Sender: FDA-Public Use
  Company Number: 1000010057

PATIENT
  Age: 74 Year
  Sex: Female

DRUGS (10)
  1. SAVELLA [Suspect]
     Indication: FIBROMYALGIA
     Dosage: 12.5 MG (12.5 MG, 1 IN 1 D), ORAL : 25 MG (12.5 MG, 2 IN 1 D), ORAL :  50 MG (25 MG, 2 IN 1 D), ORAL
     Route: 048
     Dates: start: 20090810, end: 20090810
  2. SAVELLA [Suspect]
     Indication: FIBROMYALGIA
     Dosage: 12.5 MG (12.5 MG, 1 IN 1 D), ORAL : 25 MG (12.5 MG, 2 IN 1 D), ORAL :  50 MG (25 MG, 2 IN 1 D), ORAL
     Route: 048
     Dates: start: 20090811, end: 20090812
  3. SAVELLA [Suspect]
     Indication: FIBROMYALGIA
     Dosage: 12.5 MG (12.5 MG, 1 IN 1 D), ORAL : 25 MG (12.5 MG, 2 IN 1 D), ORAL :  50 MG (25 MG, 2 IN 1 D), ORAL
     Route: 048
     Dates: start: 20090813, end: 20090816
  4. SAVELLA [Suspect]
     Indication: FIBROMYALGIA
     Dosage: 100 MG (50 MG, 2 IN 1 D), ORAL
     Route: 048
     Dates: start: 20090817, end: 20090914
  5. MIRALAX [Concomitant]
  6. BENAZEPRIL HYDROCHLORIDE [Concomitant]
  7. ATENOLOL [Concomitant]
  8. SYNTHROID [Concomitant]
  9. ZYRTEC [Concomitant]
  10. ASPIRIN [Concomitant]

REACTIONS (2)
  - NAUSEA [None]
  - VOMITING [None]
